FAERS Safety Report 8988336 (Version 1)
Quarter: 2012Q4

REPORT INFORMATION
  Report Type: Spontaneous
  Country: US (occurrence: None)
  Receive Date: 20121220
  Receipt Date: 20121220
  Transmission Date: 20130627
  Serious: Yes (Other)
  Sender: FDA-Public Use
  Company Number: None

PATIENT
  Age: 21 Year
  Sex: Male

DRUGS (6)
  1. ZIPRASIDONE [Suspect]
     Indication: AUTISM
     Dosage: qhs po
     Route: 048
     Dates: start: 20070910, end: 20121219
  2. ZIPRASIDONE [Suspect]
     Indication: ANXIETY
     Dosage: qhs po
     Route: 048
     Dates: start: 20070910, end: 20121219
  3. ZIPRASIDONE [Suspect]
     Indication: AUTISM
     Dosage: qam, + qnoon po
     Route: 048
  4. ZIPRASIDONE [Suspect]
     Indication: ANXIETY
     Dosage: qam, + qnoon po
     Route: 048
  5. INDINAVIR [Concomitant]
  6. FLUOXETINE [Concomitant]

REACTIONS (6)
  - Product substitution issue [None]
  - Anxiety [None]
  - Middle insomnia [None]
  - Psychomotor hyperactivity [None]
  - Abnormal behaviour [None]
  - Social avoidant behaviour [None]
